FAERS Safety Report 4922535-5 (Version None)
Quarter: 2006Q1

REPORT INFORMATION
  Report Type: 
  Country: None (occurrence: None)
  Receive Date: 20060224
  Receipt Date: 20060215
  Transmission Date: 20060701
  Serious: Yes (Hospitalization)
  Sender: FDA-Public Use
  Company Number: JP-ROCHE-437304

PATIENT
  Sex: Female

DRUGS (5)
  1. TAMIFLU [Suspect]
     Route: 048
     Dates: start: 20060127, end: 20060129
  2. LOXONIN [Concomitant]
     Dosage: ORAL FORMULATION
     Route: 048
  3. PL [Concomitant]
     Route: 048
  4. COLDRIN [Concomitant]
     Dosage: ORAL FORMULATION
     Route: 048
  5. CODEINE PHOSPHATE [Concomitant]
     Route: 065

REACTIONS (2)
  - DYSPNOEA [None]
  - RASH [None]
